FAERS Safety Report 7494071-6 (Version None)
Quarter: 2011Q2

REPORT INFORMATION
  Report Type: 
  Country: None (occurrence: None)
  Receive Date: 20110520
  Receipt Date: 20110518
  Transmission Date: 20111010
  Serious: Yes (Hospitalization, Other)
  Sender: FDA-Public Use
  Company Number: BR-ABBOTT-10P-020-0623116-00

PATIENT
  Sex: Female
  Weight: 60 kg

DRUGS (13)
  1. HUMIRA [Suspect]
     Indication: RHEUMATOID ARTHRITIS
     Route: 058
  2. HUMIRA [Suspect]
     Route: 058
     Dates: start: 20110516
  3. HUMIRA [Suspect]
     Route: 058
     Dates: start: 20110516
  4. NIOXIL [Concomitant]
     Indication: HYPERTENSION
     Route: 048
  5. HYDROCHLOROTHIAZIDE [Concomitant]
     Dosage: 50MG DAILY, 25MG 2 IN 1 DAY
  6. CHLOROQUINE [Concomitant]
     Indication: ARTHRALGIA
  7. ENDOCLORANA [Concomitant]
     Indication: HYPERTENSION
     Route: 048
  8. METILVITA [Concomitant]
     Indication: HYPERTENSION
     Route: 048
  9. HYDROCHLOROTHIAZIDE [Concomitant]
     Indication: HYPERTENSION
     Route: 048
  10. TRAMBENE [Concomitant]
     Indication: PAIN
     Route: 048
  11. EUCIL [Concomitant]
     Indication: HYPERTENSION
     Dosage: 1-2 PER DAY
     Route: 048
  12. TRAMBENE [Concomitant]
     Indication: SWELLING
  13. METHYLDOPA [Concomitant]
     Indication: HYPERTENSION
     Dosage: 500MG DAILY, 250MG 2 IN 1 DAY
     Route: 048

REACTIONS (11)
  - JOINT SWELLING [None]
  - MEMORY IMPAIRMENT [None]
  - ARRHYTHMIA [None]
  - BLISTER [None]
  - GAIT DISTURBANCE [None]
  - ARTHRALGIA [None]
  - HAEMORRHAGE [None]
  - SUTURE RELATED COMPLICATION [None]
  - OSTEOARTHRITIS [None]
  - WEIGHT DECREASED [None]
  - ARTHRITIS [None]
